FAERS Safety Report 21285463 (Version 1)
Quarter: 2022Q3

REPORT INFORMATION
  Report Type: Spontaneous
  Country: US (occurrence: None)
  Receive Date: 20220901
  Receipt Date: 20220901
  Transmission Date: 20221026
  Serious: Yes (Hospitalization)
  Sender: FDA-Public Use
  Company Number: None

PATIENT
  Age: 34 Year
  Sex: Female

DRUGS (1)
  1. BEBTELOVIMAB [Suspect]
     Active Substance: BEBTELOVIMAB
     Indication: COVID-19
     Dosage: FREQUENCY : ONCE;?
     Route: 040
     Dates: start: 20220830

REACTIONS (7)
  - Dyspnoea [None]
  - Chest pain [None]
  - Heart rate increased [None]
  - Abdominal discomfort [None]
  - Tearfulness [None]
  - Paraesthesia [None]
  - Muscle twitching [None]

NARRATIVE: CASE EVENT DATE: 20220830
